FAERS Safety Report 5635438-8 (Version None)
Quarter: 2008Q1

REPORT INFORMATION
  Report Type: 
  Country: None (occurrence: None)
  Receive Date: 20080222
  Receipt Date: 20080212
  Transmission Date: 20080703
  Serious: Yes (Hospitalization)
  Sender: FDA-Public Use
  Company Number: SE-BAYER-200813050GPV

PATIENT
  Age: 50 Year
  Sex: Female

DRUGS (2)
  1. FLUDARA / FLUDARABIN [Suspect]
     Indication: B-CELL LYMPHOMA
     Route: 048
     Dates: start: 20070501, end: 20070701
  2. SENDOXAN [Suspect]
     Indication: B-CELL LYMPHOMA
     Dates: start: 20070501, end: 20070701

REACTIONS (1)
  - DERMATITIS BULLOUS [None]
